FAERS Safety Report 5030319-5 (Version None)
Quarter: 2006Q2

REPORT INFORMATION
  Report Type: 
  Country: None (occurrence: None)
  Receive Date: 20060615
  Receipt Date: 20060606
  Transmission Date: 20061013
  Serious: Yes (Other)
  Sender: FDA-Public Use
  Company Number: 2006015763

PATIENT
  Age: 17 Year
  Sex: Male
  Weight: 73.5 kg

DRUGS (12)
  1. FOSPHENYTOIN SODIUM [Suspect]
     Indication: COMPLEX PARTIAL SEIZURES
     Dosage: ONE TIME, INTRAVENOUS
     Route: 042
     Dates: start: 20030417, end: 20030418
  2. FOSPHENYTOIN SODIUM [Suspect]
     Indication: CONVULSION PROPHYLAXIS
     Dosage: ONE TIME, INTRAVENOUS
     Route: 042
     Dates: start: 20030417, end: 20030418
  3. TACROLIMUS (TACROLIMUS) [Suspect]
     Indication: ILL-DEFINED DISORDER
     Dosage: 6 MG (3 MG, EVERY 12 HOURS), ORAL
     Route: 048
  4. MYCOPHENOLATE MOFETIL [Concomitant]
  5. PREDNISONE [Concomitant]
  6. AMLODIPINE [Concomitant]
  7. BACTRIM [Concomitant]
  8. GANCICLOVIR [Concomitant]
  9. CALCIUM CARBONATE [Concomitant]
  10. CALCIUM ACETATE [Concomitant]
  11. SODIUM BICARBONATE [Concomitant]
  12. ALLOPURINOL [Concomitant]

REACTIONS (6)
  - BLOOD CALCIUM DECREASED [None]
  - CALCIUM PHOSPHATE PRODUCT INCREASED [None]
  - DRUG INTERACTION [None]
  - DRUG LEVEL INCREASED [None]
  - HAEMODIALYSIS [None]
  - HYPERPHOSPHATAEMIA [None]
